FAERS Safety Report 4914252-2 (Version None)
Quarter: 2006Q1

REPORT INFORMATION
  Report Type: 
  Country: None (occurrence: None)
  Receive Date: 20060213
  Receipt Date: 20060203
  Transmission Date: 20060701
  Serious: Yes (Other)
  Sender: FDA-Public Use
  Company Number: 2006-02-0123

PATIENT
  Age: 46 Year
  Sex: Male

DRUGS (4)
  1. NASONEX [Suspect]
     Dosage: NASAL SPRAY
     Route: 045
     Dates: start: 20040101
  2. TEMAZEPAM [Concomitant]
  3. SALBUTAMOL SULPHATE [Concomitant]
  4. PAROXETINE HCL [Concomitant]

REACTIONS (3)
  - ANXIETY [None]
  - DEPRESSION [None]
  - PSYCHOTIC DISORDER [None]
